FAERS Safety Report 5093989-1 (Version None)
Quarter: 2006Q3

REPORT INFORMATION
  Report Type: 
  Country: None (occurrence: None)
  Receive Date: 20060829
  Receipt Date: 20060829
  Transmission Date: 20061208
  Serious: Yes (Hospitalization)
  Sender: FDA-Public Use
  Company Number: None

PATIENT
  Sex: Female
  Weight: 56 kg

DRUGS (2)
  1. CYCLOPHOSPHAMIDE [Suspect]
     Dosage: 5760 MG (600 MG/M2 Q 14 DAYS)
  2. DOXORUBICIN HYDROCHLORIDE [Suspect]
     Dosage: 576 MG (60 MG/M2 Q 14 DAYS)

REACTIONS (9)
  - ANAEMIA OF CHRONIC DISEASE [None]
  - BODY TEMPERATURE INCREASED [None]
  - CHILLS [None]
  - COUGH [None]
  - FATIGUE [None]
  - HYPERSOMNIA [None]
  - INTERSTITIAL LUNG DISEASE [None]
  - LUNG DISORDER [None]
  - PNEUMONIA PRIMARY ATYPICAL [None]
